FAERS Safety Report 17266830 (Version 1)
Quarter: 2020Q1

REPORT INFORMATION
  Report Type: Spontaneous
  Country: US (occurrence: US)
  Receive Date: 20200113
  Receipt Date: 20200113
  Transmission Date: 20200409
  Serious: Yes (Other)
  Sender: FDA-Public Use
  Company Number: None

PATIENT
  Age: 30 Year
  Sex: Female
  Weight: 56.25 kg

DRUGS (1)
  1. SEYSARA [Suspect]
     Active Substance: SARECYCLINE HYDROCHLORIDE
     Indication: ACNE

REACTIONS (4)
  - Fibromyalgia [None]
  - Fatigue [None]
  - Laboratory test abnormal [None]
  - Condition aggravated [None]

NARRATIVE: CASE EVENT DATE: 20191204
